FAERS Safety Report 5820353-7 (Version None)
Quarter: 2008Q3

REPORT INFORMATION
  Report Type: 
  Country: None (occurrence: None)
  Receive Date: 20080724
  Receipt Date: 20070614
  Transmission Date: 20090109
  Serious: No
  Sender: FDA-Public Use
  Company Number: A0656588A

PATIENT
  Age: 58 Year
  Sex: Male

DRUGS (2)
  1. AVANDIA [Suspect]
     Route: 048
  2. UNSPECIFIED MEDICATION [Concomitant]

REACTIONS (1)
  - CHEST PAIN [None]
